FAERS Safety Report 14405660 (Version 7)
Quarter: 2018Q3

REPORT INFORMATION
  Report Type: Spontaneous
  Country: US (occurrence: US)
  Receive Date: 20180118
  Receipt Date: 20180831
  Transmission Date: 20181010
  Serious: Yes (Hospitalization)
  Sender: FDA-Public Use
  Company Number: US-ASTELLAS-2017US037149

PATIENT
  Age: 83 Year
  Sex: Male

DRUGS (2)
  1. XTANDI [Suspect]
     Active Substance: ENZALUTAMIDE
     Route: 048
  2. XTANDI [Suspect]
     Active Substance: ENZALUTAMIDE
     Indication: PROSTATE CANCER
     Route: 048
     Dates: start: 201709

REACTIONS (9)
  - Hot flush [Unknown]
  - Hot flush [Recovering/Resolving]
  - Inappropriate schedule of drug administration [Unknown]
  - Palpitations [Unknown]
  - Urinary tract infection [Recovered/Resolved]
  - Bladder disorder [Unknown]
  - Drug prescribing error [Unknown]
  - Malaise [Unknown]
  - Product size issue [Unknown]

NARRATIVE: CASE EVENT DATE: 201712
